FAERS Safety Report 20205336 (Version 6)
Quarter: 2022Q1

REPORT INFORMATION
  Report Type: Report from Study
  Country: KR (occurrence: KR)
  Receive Date: 20211220
  Receipt Date: 20220324
  Transmission Date: 20220423
  Serious: Yes (Death, Hospitalization)
  Sender: FDA-Public Use
  Company Number: KR-GLAXOSMITHKLINE-KR2021237393

PATIENT
  Age: 72 Year
  Sex: Male

DRUGS (26)
  1. BELANTAMAB MAFODOTIN [Suspect]
     Active Substance: BELANTAMAB MAFODOTIN
     Indication: Plasma cell myeloma
     Dosage: 250 ML, CYC
     Route: 042
     Dates: start: 20210511, end: 20211013
  2. BORTEZOMIB [Suspect]
     Active Substance: BORTEZOMIB
     Indication: Plasma cell myeloma
     Dosage: 2.24 MG, CYC
     Route: 058
     Dates: start: 20210511, end: 20211025
  3. DEXAMETHASONE [Suspect]
     Active Substance: DEXAMETHASONE
     Indication: Plasma cell myeloma
     Dosage: 20 MG
     Dates: start: 20210511, end: 20211026
  4. MORPHINE [Concomitant]
     Active Substance: MORPHINE
     Indication: Pain
     Dosage: 2 MG, PRN
     Route: 042
     Dates: start: 20211206, end: 20211206
  5. MORPHINE SULFATE [Concomitant]
     Active Substance: MORPHINE SULFATE
     Indication: Pain prophylaxis
     Dosage: 10 MG, PRN
     Route: 042
     Dates: start: 20211206, end: 20211210
  6. MORPHINE SULFATE [Concomitant]
     Active Substance: MORPHINE SULFATE
     Dosage: 90 MG, PRN
     Route: 042
     Dates: start: 20211206, end: 20211210
  7. BEAROBAN [Concomitant]
     Indication: Pain prophylaxis
     Dosage: 1 DF, PRN
     Route: 061
     Dates: start: 20211203, end: 20211209
  8. TANTUM [Concomitant]
     Active Substance: BENZYDAMINE HYDROCHLORIDE
     Indication: Inflammation
     Dosage: 1 DF, TID
     Route: 048
     Dates: start: 20211201, end: 20211203
  9. BARACLUDE [Concomitant]
     Active Substance: ENTECAVIR
     Indication: Liver function test abnormal
     Dosage: 0.5 DF, 1D
     Route: 048
     Dates: start: 20211129, end: 20211205
  10. URSODIOL [Concomitant]
     Active Substance: URSODIOL
     Indication: Liver function test abnormal
     Dosage: 1 DF, TID
     Route: 048
     Dates: start: 20211122, end: 20211123
  11. URSODIOL [Concomitant]
     Active Substance: URSODIOL
     Dosage: 1 DF, TID
     Route: 048
     Dates: start: 20211129, end: 20211205
  12. GODEX [Concomitant]
     Indication: Liver function test abnormal
     Dosage: 1 DF, TID
     Route: 048
     Dates: start: 20211123, end: 20211123
  13. GODEX [Concomitant]
     Dosage: 2 DF, TID
     Route: 048
     Dates: start: 20211129, end: 20211205
  14. SULFAMETHOXAZOLE\TRIMETHOPRIM [Concomitant]
     Active Substance: SULFAMETHOXAZOLE\TRIMETHOPRIM
     Indication: Antiviral treatment
     Dosage: 1 DF, 1D
     Route: 048
     Dates: start: 20211128, end: 20211128
  15. TASNA [Concomitant]
     Indication: Gastritis prophylaxis
     Dosage: 1 DF, 1D
     Route: 048
     Dates: start: 20211128, end: 20211128
  16. VITAMIN K1 [Concomitant]
     Active Substance: PHYTONADIONE
     Indication: Prothrombin time prolonged
     Dosage: 1 DF, 1D
     Route: 015
     Dates: start: 20211125, end: 20211125
  17. MECKOOL [Concomitant]
     Indication: Gastritis prophylaxis
     Dosage: 0.5 DF (AMPOULE), 1D
     Route: 042
     Dates: start: 20211125, end: 20211125
  18. PHOSTEN [Concomitant]
     Indication: Nutritional supplementation
     Dosage: 1 DF, 1D
     Route: 042
     Dates: start: 20211122, end: 20211123
  19. ALBUMIN HUMAN [Concomitant]
     Active Substance: ALBUMIN HUMAN
     Indication: Blood albumin abnormal
     Dosage: 1 DF, 1D
     Route: 042
     Dates: start: 20211122, end: 20211122
  20. GASMOTIN POWDER [Concomitant]
     Indication: Gastritis prophylaxis
     Dosage: 5 MG, TID
     Route: 048
     Dates: start: 20211118, end: 20211205
  21. TRESIBA [Concomitant]
     Active Substance: INSULIN DEGLUDEC
     Indication: Diabetes mellitus
     Dosage: 1 DF, PRN
     Route: 058
     Dates: start: 20211119, end: 20211125
  22. HEXAMEDIN [Concomitant]
     Indication: Inflammation
     Dosage: 1 DF, BID
     Route: 048
     Dates: start: 20211119, end: 20211129
  23. HEPARIN SODIUM [Concomitant]
     Active Substance: HEPARIN SODIUM
     Indication: Coagulopathy
     Dosage: 1 DF, PRN
     Route: 042
     Dates: start: 20211116, end: 20211125
  24. HUMALOG KWIKPEN [Concomitant]
     Active Substance: INSULIN LISPRO
     Indication: Diabetes mellitus
     Dosage: 1 DF, 1D
     Route: 058
     Dates: start: 20211118, end: 20211209
  25. PANTOPRAZOLE SODIUM [Concomitant]
     Active Substance: PANTOPRAZOLE SODIUM
     Indication: Gastritis prophylaxis
     Dosage: 1 DF, 1D
     Route: 042
     Dates: start: 20211118, end: 20211125
  26. ISOPTIN [Concomitant]
     Active Substance: VERAPAMIL HYDROCHLORIDE
     Indication: Arrhythmia
     Dosage: 1 DF, PRN
     Route: 042
     Dates: start: 20211116, end: 20211117

REACTIONS (1)
  - Pneumonitis [Fatal]

NARRATIVE: CASE EVENT DATE: 20211102
